FAERS Safety Report 7188193-7 (Version None)
Quarter: 2010Q4

REPORT INFORMATION
  Report Type: 
  Country: None (occurrence: None)
  Receive Date: 20101222
  Receipt Date: 20101213
  Transmission Date: 20110411
  Serious: Yes (Hospitalization)
  Sender: FDA-Public Use
  Company Number: IT-MYLANLABS-2010S1023216

PATIENT
  Age: 6 Month
  Sex: Male

DRUGS (2)
  1. PROPRANOLOL [Suspect]
     Indication: HAEMANGIOMA
     Dosage: IN THREE DIVIDED DOSES
     Route: 065
  2. PROPRANOLOL [Suspect]
     Indication: HEPATIC LESION
     Dosage: IN THREE DIVIDED DOSES
     Route: 065

REACTIONS (1)
  - HYPOGLYCAEMIC SEIZURE [None]
